FAERS Safety Report 16337261 (Version 1)
Quarter: 2019Q2

REPORT INFORMATION
  Report Type: Report from Study
  Country: IT (occurrence: IT)
  Receive Date: 20190521
  Receipt Date: 20190521
  Transmission Date: 20190711
  Serious: Yes (Death, Hospitalization)
  Sender: FDA-Public Use
  Company Number: IT-ROCHE-2305599

PATIENT
  Age: 58 Year
  Sex: Female
  Weight: 57.5 kg

DRUGS (12)
  1. ATEZOLIZUMAB. [Suspect]
     Active Substance: ATEZOLIZUMAB
     Indication: DIFFUSE LARGE B-CELL LYMPHOMA
     Dosage: ATEZOLIZUMAB 1200 MG IV ON DAY 1 CYCLES 2-8, FOLLOWED BY 1200 MG IV ON DAY 1 OF CYCLES 9-25 (AS PER
     Route: 042
     Dates: start: 20170912
  2. ZYLLT [Concomitant]
     Active Substance: CLOPIDOGREL BISULFATE
     Indication: ANTICOAGULANT THERAPY
     Route: 065
     Dates: start: 20170817
  3. DEURSIL [Concomitant]
     Active Substance: URSODIOL
     Route: 065
     Dates: start: 20170911
  4. VINCRISTINE [Suspect]
     Active Substance: VINCRISTINE
     Indication: DIFFUSE LARGE B-CELL LYMPHOMA
     Dosage: VINCRISTINE WILL BE ADMINISTERED AT A DOSE OF 1.4 MG/M^2 (MAXIMUM 2 MG) IV ON DAY 1 OF CYCLE 1-6/8 (
     Route: 042
     Dates: start: 20170821
  5. PANTORC [Concomitant]
     Active Substance: PANTOPRAZOLE SODIUM
     Indication: GASTRITIS PROPHYLAXIS
     Route: 065
     Dates: start: 20170911
  6. ALLOPURINOLO [Concomitant]
     Active Substance: ALLOPURINOL
     Route: 065
     Dates: start: 20170911
  7. METHYLPREDNISOLONE. [Suspect]
     Active Substance: METHYLPREDNISOLONE
     Indication: DIFFUSE LARGE B-CELL LYMPHOMA
     Dosage: MOST RECENT DOSE OF METHYLPREDNISOLONE, 1200 MG/M2 ON 04/JAN/2018
     Route: 048
     Dates: start: 20170821
  8. ZELITREX [Concomitant]
     Active Substance: VALACYCLOVIR HYDROCHLORIDE
     Indication: ANTIVIRAL PROPHYLAXIS
     Route: 065
     Dates: start: 20171031
  9. DOXORUBICIN [Suspect]
     Active Substance: DOXORUBICIN
     Indication: DIFFUSE LARGE B-CELL LYMPHOMA
     Dosage: DOXORUBICIN WILL BE ADMINISTERED AT A DOSE OF 50 MG/M^2 IV ON DAY 1 OF CYCLE 1-6/8 (AS PER PROTOCOL)
     Route: 042
     Dates: start: 20170821
  10. CYCLOPHOSPHAMIDE. [Suspect]
     Active Substance: CYCLOPHOSPHAMIDE
     Indication: DIFFUSE LARGE B-CELL LYMPHOMA
     Dosage: CYCLOPHOSPHAMIDE WILL BE ADMINISTERED AT A DOSE OF 750 MG/M^2 IV ON DAY 1 OF CYCLE 1-6/8 (AS PER PRO
     Route: 042
     Dates: start: 20170821
  11. BACTRIM [Concomitant]
     Active Substance: SULFAMETHOXAZOLE\TRIMETHOPRIM
     Indication: PROPHYLAXIS
     Route: 065
     Dates: start: 20170911
  12. RITUXIMAB. [Suspect]
     Active Substance: RITUXIMAB
     Indication: DIFFUSE LARGE B-CELL LYMPHOMA
     Dosage: RITUXIMAB AT A DOSE OF 375 MG/M^2 IV ON DAY 1 OF CYCLE 1-8 (AS PER PROTOCOL).?MOST RECENT DOSE OF R
     Route: 042
     Dates: start: 20170821

REACTIONS (1)
  - Progressive multifocal leukoencephalopathy [Fatal]

NARRATIVE: CASE EVENT DATE: 20190415
